FAERS Safety Report 7166965-2 (Version None)
Quarter: 2010Q4

REPORT INFORMATION
  Report Type: 
  Country: None (occurrence: None)
  Receive Date: 20101216
  Receipt Date: 20101206
  Transmission Date: 20110411
  Serious: Yes (Hospitalization, Congenital Anomaly)
  Sender: FDA-Public Use
  Company Number: A0738046A

PATIENT
  Sex: Male

DRUGS (2)
  1. PAXIL [Suspect]
     Indication: ANXIETY
     Dates: start: 20001001, end: 20011201
  2. PAROXETINE [Suspect]
     Indication: ANXIETY
     Dates: start: 20040129, end: 20051017

REACTIONS (7)
  - CONGENITAL HYDRONEPHROSIS [None]
  - DRUG EXPOSURE DURING PREGNANCY [None]
  - KIDNEY MALFORMATION [None]
  - MULTIPLE CONGENITAL ABNORMALITIES [None]
  - NEPHROLITHIASIS [None]
  - PYELOCALIECTASIS [None]
  - RENAL TUBULAR ACIDOSIS [None]
